FAERS Safety Report 10038585 (Version 1)
Quarter: 2014Q1

REPORT INFORMATION
  Report Type: Spontaneous
  Country: US (occurrence: None)
  Receive Date: 20140306
  Receipt Date: 20140306
  Transmission Date: 20141002
  Serious: Yes (Hospitalization)
  Sender: FDA-Public Use
  Company Number: 163-21880-13064524

PATIENT
  Age: 67 Year
  Sex: Male

DRUGS (15)
  1. REVLIMID (LENALIDOMIDE) (CAPSULES) [Suspect]
     Indication: PLASMA CELL MYELOMA
     Dosage: 25MG, 14 IN 14 D, PO
     Route: 048
     Dates: start: 20130610, end: 20130624
  2. ACYCLOVIR (ACICLOVIR) [Concomitant]
  3. AREDIA (PAMIDRONATE DISODIUM) [Concomitant]
  4. CALTRATE (CALCIUM CARBONATE) [Concomitant]
  5. COMPAZINE (PROCHLORPERAZINE EDISYLATE) [Concomitant]
  6. COUMADIN (WARFARIN SODIUM) [Concomitant]
  7. DEXAMETHASONE (DEXAMETHASONE) [Concomitant]
  8. FAMOTIDINE (FAMOTIDINE) [Concomitant]
  9. FOSAMAX (ALENDRONATE SODIUM) [Concomitant]
  10. FOSINOPRIL (FOSINOPRIL) [Concomitant]
  11. HCTZ (HYDROCHLOROTHIAZIDE) [Concomitant]
  12. KCL (POTASSIUM CHLORIDE) [Concomitant]
  13. VELCADE (BORTEZOMIB) [Concomitant]
  14. VITAMIN D3 (COLECALCIFEROL) [Concomitant]
  15. ZOFRAN (ONDANSETRON HYDROCHLORIDE) [Concomitant]

REACTIONS (1)
  - Clostridium difficile colitis [None]
